FAERS Safety Report 24602228 (Version 3)
Quarter: 2024Q4

REPORT INFORMATION
  Report Type: Spontaneous
  Country: US (occurrence: US)
  Receive Date: 20241111
  Receipt Date: 20241205
  Transmission Date: 20250115
  Serious: No
  Sender: BRISTOL-MYERS SQUIBB COMPANY
  Company Number: US-BRISTOL-MYERS SQUIBB COMPANY-2024-175686

PATIENT
  Age: 63 Year
  Sex: Male

DRUGS (2)
  1. POMALYST [Suspect]
     Active Substance: POMALIDOMIDE
     Indication: Plasma cell myeloma
     Route: 048
     Dates: start: 202410
  2. POMALYST [Suspect]
     Active Substance: POMALIDOMIDE
     Indication: Plasma cell myeloma refractory
     Route: 048
     Dates: start: 20241018

REACTIONS (3)
  - Somnolence [Unknown]
  - Muscle spasms [Unknown]
  - Rhinovirus infection [Recovering/Resolving]

NARRATIVE: CASE EVENT DATE: 20241126
